FAERS Safety Report 5855915-4 (Version None)
Quarter: 2008Q3

REPORT INFORMATION
  Report Type: 
  Country: None (occurrence: None)
  Receive Date: 20080821
  Receipt Date: 20080821
  Transmission Date: 20090109
  Serious: Yes (Hospitalization)
  Sender: FDA-Public Use
  Company Number: None

PATIENT
  Sex: Female
  Weight: 77.5651 kg

DRUGS (1)
  1. LYRICA [Suspect]
     Indication: FIBROMYALGIA
     Dosage: 200 MG 3X DAILY
     Dates: start: 20070530, end: 20071021

REACTIONS (10)
  - AMNESIA [None]
  - BALANCE DISORDER [None]
  - CRUSH INJURY [None]
  - DIZZINESS [None]
  - DYSARTHRIA [None]
  - FALL [None]
  - HALLUCINATION, VISUAL [None]
  - SOMNOLENCE [None]
  - UPPER LIMB FRACTURE [None]
  - WEIGHT INCREASED [None]
